FAERS Safety Report 5072669-2 (Version None)
Quarter: 2006Q3

REPORT INFORMATION
  Report Type: 
  Country: None (occurrence: None)
  Receive Date: 20060807
  Receipt Date: 20060803
  Transmission Date: 20061208
  Serious: Yes (Life-Threatening, Hospitalization)
  Sender: FDA-Public Use
  Company Number: DE-GLAXOSMITHKLINE-D0050528A

PATIENT
  Age: 3 Day
  Sex: Male
  Weight: 2.7 kg

DRUGS (1)
  1. RETROVIR [Suspect]
     Indication: ANTIVIRAL PROPHYLAXIS
     Dosage: 3.5MG FOUR TIMES PER DAY
     Route: 042
     Dates: start: 20040119, end: 20040128

REACTIONS (3)
  - ABDOMINAL DISTENSION [None]
  - HAEMATOCHEZIA [None]
  - NECROTISING COLITIS [None]
